FAERS Safety Report 8942025 (Version 3)
Quarter: 2013Q1

REPORT INFORMATION
  Report Type: Spontaneous
  Country: US (occurrence: US)
  Receive Date: 20121130
  Receipt Date: 20130221
  Transmission Date: 20140127
  Serious: Yes (Other)
  Sender: FDA-Public Use
  Company Number: US-PFIZER INC-2012300822

PATIENT
  Age: 56 Year
  Sex: Female
  Weight: 118.82 kg

DRUGS (16)
  1. CHANTIX [Suspect]
     Indication: SMOKING CESSATION THERAPY
     Dosage: 0.5 MG, 1X/DAY
     Route: 048
     Dates: start: 201110
  2. CHANTIX [Suspect]
     Dosage: TWICE DAILY
     Route: 048
     Dates: start: 201211
  3. CHANTIX [Suspect]
     Dosage: 1 MG, USE AS DIRECTED
     Route: 048
     Dates: start: 20130103
  4. LYRICA [Suspect]
     Indication: PAIN IN EXTREMITY
     Dosage: 75 MG, 3X/DAY
     Route: 048
     Dates: start: 20121119
  5. LYRICA [Suspect]
     Indication: PAIN
  6. CELEBREX [Suspect]
     Indication: ARTHRITIS
     Dosage: 200 MG, 2X/DAY AS NEEDED
     Route: 048
     Dates: start: 201108
  7. CELEBREX [Suspect]
     Indication: PAIN
     Dosage: 200 MG, 2X/DAY
     Route: 048
     Dates: start: 20121205
  8. COUMADINE [Concomitant]
     Indication: THROMBOSIS
     Dosage: UNK
  9. ACETYLSALICYLIC ACID [Concomitant]
     Dosage: 81 MG, ONCE DAILY
     Route: 048
  10. BUMEX [Concomitant]
     Dosage: 1 MG, 1X/DAY
     Route: 048
  11. VITAMIN B12 [Concomitant]
     Dosage: 1000 MCG/ML INJECTION , MONTHLY
     Route: 030
  12. IRON [Concomitant]
     Dosage: UNK ONCE DAILY
     Route: 048
  13. MULTIVITAMINS [Concomitant]
     Dosage: UNK ONCE DAILY
     Route: 048
  14. TYLENOL ARTHRITIS [Concomitant]
     Dosage: 650 MG, AS NEEDED
     Route: 048
  15. MAXIVATE [Concomitant]
     Indication: PSORIASIS
     Dosage: 0.05 %, APPLY TO THICKER AREAS OF PSORIASIS DAILY FOR 2 WEEKS THEN STOP FOR 2 WEEKS
     Route: 061
  16. VIBRAMYCIN [Concomitant]
     Dosage: 100 MG, TAKE 1 CAPSULE BY MOUTH TWICE DAILY
     Route: 048
     Dates: start: 20130103

REACTIONS (4)
  - Staphylococcal infection [Unknown]
  - Influenza [Unknown]
  - Laryngitis [Unknown]
  - Dry throat [Unknown]
